FAERS Safety Report 15824372 (Version 1)
Quarter: 2019Q1

REPORT INFORMATION
  Report Type: Spontaneous
  Country: US (occurrence: US)
  Receive Date: 20190115
  Receipt Date: 20190115
  Transmission Date: 20190417
  Serious: No
  Sender: FDA-Public Use
  Company Number: US-MELINTA THERAPEUTICS, INC.-MTP201810-000084

PATIENT
  Sex: Female

DRUGS (1)
  1. BAXDELA [Suspect]
     Active Substance: DELAFLOXACIN MEGLUMINE
     Indication: CELLULITIS
     Dosage: 450 MG
     Route: 048
     Dates: start: 20181001, end: 20181007

REACTIONS (2)
  - Depression [Unknown]
  - Nervousness [Unknown]
